FAERS Safety Report 11326366 (Version 2)
Quarter: 2017Q4

REPORT INFORMATION
  Report Type: Spontaneous
  Country: CH (occurrence: CH)
  Receive Date: 20150731
  Receipt Date: 20171103
  Transmission Date: 20180320
  Serious: Yes (Death, Life-Threatening)
  Sender: FDA-Public Use
  Company Number: CH-CIPLA LTD.-2015CH06011

PATIENT

DRUGS (17)
  1. METOCLOPRAMIDE. [Suspect]
     Active Substance: METOCLOPRAMIDE
     Indication: COMPLETED SUICIDE
     Dosage: UNK
     Route: 033
  2. PROPYPHENAZONE [Suspect]
     Active Substance: PROPYPHENAZONE
     Indication: COMPLETED SUICIDE
     Dosage: UNK
     Route: 033
  3. TRAMADOL. [Suspect]
     Active Substance: TRAMADOL
     Indication: COMPLETED SUICIDE
     Dosage: UNK
     Route: 033
  4. ALCOHOL. [Suspect]
     Active Substance: ALCOHOL
     Indication: COMPLETED SUICIDE
     Dosage: UNK
     Route: 033
  5. LOPERAMIDE [Suspect]
     Active Substance: LOPERAMIDE
     Indication: COMPLETED SUICIDE
     Dosage: UNK
     Route: 033
  6. PENTOBARBITAL. [Suspect]
     Active Substance: PENTOBARBITAL
     Indication: COMPLETED SUICIDE
     Dosage: UNK
     Route: 033
  7. BUTALBITAL [Suspect]
     Active Substance: BUTALBITAL
     Indication: COMPLETED SUICIDE
     Dosage: UNK
     Route: 033
  8. BISOPROLOL [Suspect]
     Active Substance: BISOPROLOL
     Indication: COMPLETED SUICIDE
     Dosage: UNK
     Route: 033
  9. CITALOPRAM [Suspect]
     Active Substance: CITALOPRAM HYDROBROMIDE
     Indication: COMPLETED SUICIDE
     Dosage: UNK
     Route: 033
  10. DIAZEPAM. [Suspect]
     Active Substance: DIAZEPAM
     Indication: COMPLETED SUICIDE
     Dosage: UNK
     Route: 033
  11. TRAZODONE [Suspect]
     Active Substance: TRAZODONE HYDROCHLORIDE
     Indication: COMPLETED SUICIDE
     Dosage: UNK
     Route: 033
  12. 7-AMINOFLUNITRAZEPAM [Suspect]
     Active Substance: 7-AMINOFLUNITRAZEPAM
     Indication: COMPLETED SUICIDE
     Dosage: UNK
     Route: 033
  13. 7-AMINO-FLUNITRAZEPAM [Suspect]
     Active Substance: 7-AMINOFLUNITRAZEPAM
     Indication: COMPLETED SUICIDE
     Dosage: UNK
     Route: 033
  14. METAMIZOLE [Suspect]
     Active Substance: METAMIZOLE
     Indication: COMPLETED SUICIDE
     Dosage: UNK
     Route: 033
  15. DEXTROMETHORPHAN [Suspect]
     Active Substance: DEXTROMETHORPHAN
     Indication: COMPLETED SUICIDE
     Dosage: UNK
     Route: 033
  16. NORDAZEPAM [Suspect]
     Active Substance: NORDAZEPAM
     Indication: COMPLETED SUICIDE
     Dosage: UNK
     Route: 033
  17. ZOLPIDEM TARTARATE [Suspect]
     Active Substance: ZOLPIDEM TARTRATE
     Indication: COMPLETED SUICIDE
     Dosage: UNK
     Route: 033

REACTIONS (3)
  - Intentional overdose [Fatal]
  - Toxicity to various agents [Fatal]
  - Completed suicide [Fatal]
